FAERS Safety Report 5194400-2 (Version None)
Quarter: 2006Q4

REPORT INFORMATION
  Report Type: 
  Country: None (occurrence: None)
  Receive Date: 20061228
  Receipt Date: 20061218
  Transmission Date: 20070319
  Serious: Yes (Other)
  Sender: FDA-Public Use
  Company Number: JP-PFIZER INC-2006155474

PATIENT
  Age: 30 Year
  Sex: Male

DRUGS (3)
  1. SOLANAX [Suspect]
     Dosage: DAILY DOSE:2.4MG
     Route: 048
  2. SERTRALINE [Suspect]
     Dosage: DAILY DOSE:25MG
     Route: 048
     Dates: start: 20061106, end: 20061107
  3. LANDSEN [Concomitant]
     Route: 048

REACTIONS (2)
  - DRUG DEPENDENCE [None]
  - MALE SEXUAL DYSFUNCTION [None]
